FAERS Safety Report 6877455-6 (Version None)
Quarter: 2010Q3

REPORT INFORMATION
  Report Type: 
  Country: None (occurrence: None)
  Receive Date: 20100727
  Receipt Date: 20091228
  Transmission Date: 20110219
  Serious: No
  Sender: FDA-Public Use
  Company Number: US-ABBOTT-10P-163-0617242-00

PATIENT
  Sex: Female
  Weight: 68.1 kg

DRUGS (4)
  1. LEVOTHYROXINE [Suspect]
     Indication: THYROIDECTOMY
     Route: 048
     Dates: start: 19820101, end: 20040101
  2. LEVOTHYROXINE [Suspect]
     Route: 048
     Dates: start: 20040101
  3. TRILIPIX [Suspect]
     Indication: BLOOD CHOLESTEROL INCREASED
     Route: 048
     Dates: start: 20090910, end: 20091227
  4. CENTURY MATURE MULTIVITAMIN FOR SENIORS [Concomitant]
     Indication: VITAMIN SUPPLEMENTATION
     Route: 048
     Dates: end: 20091223

REACTIONS (4)
  - BACK PAIN [None]
  - DYSPEPSIA [None]
  - MUSCLE SPASMS [None]
  - PAIN IN EXTREMITY [None]
